FAERS Safety Report 5524566-3 (Version None)
Quarter: 2007Q4

REPORT INFORMATION
  Report Type: 
  Country: None (occurrence: None)
  Receive Date: 20071123
  Receipt Date: 20071112
  Transmission Date: 20080405
  Serious: Yes (Other)
  Sender: FDA-Public Use
  Company Number: US-JNJFOC-20071104491

PATIENT
  Sex: Male
  Weight: 122.47 kg

DRUGS (2)
  1. FENTANYL TRANSDERMAL SYSTEM [Suspect]
     Indication: SPINAL COLUMN STENOSIS
     Route: 062
  2. DURAGESIC-100 [Suspect]
     Indication: SPINAL COLUMN STENOSIS
     Route: 062

REACTIONS (10)
  - CONSTIPATION [None]
  - DRUG ABUSE [None]
  - DYSURIA [None]
  - FEAR [None]
  - MUSCULOSKELETAL CHEST PAIN [None]
  - PAINFUL DEFAECATION [None]
  - PARKINSON'S DISEASE [None]
  - POLLAKIURIA [None]
  - RENAL CYST [None]
  - WRONG TECHNIQUE IN DRUG USAGE PROCESS [None]
